FAERS Safety Report 25240153 (Version 1)
Quarter: 2025Q2

REPORT INFORMATION
  Report Type: Spontaneous
  Country: CN (occurrence: CN)
  Receive Date: 20250425
  Receipt Date: 20250425
  Transmission Date: 20250717
  Serious: Yes (Other)
  Sender: Harrow Health
  Company Number: CN-HARROW-HAR-2025-CN-00107

PATIENT
  Age: 29 Year
  Sex: Male

DRUGS (7)
  1. FLAREX [Suspect]
     Active Substance: FLUOROMETHOLONE ACETATE
     Indication: Diffuse lamellar keratitis
     Route: 065
  2. PREDNISOLONE ACETATE [Suspect]
     Active Substance: PREDNISOLONE ACETATE
     Indication: Diffuse lamellar keratitis
     Route: 065
  3. TOBRAMYCIN [Suspect]
     Active Substance: TOBRAMYCIN
     Route: 065
  4. DEXAMETHASONE [Concomitant]
     Active Substance: DEXAMETHASONE
  5. LEVOFLOXACIN [Concomitant]
     Active Substance: LEVOFLOXACIN
  6. intravenous vitamin C [Concomitant]
  7. artificial tears [Concomitant]

REACTIONS (9)
  - Keratopathy [Recovering/Resolving]
  - Corneal oedema [Recovered/Resolved]
  - Corneal opacity [Recovered/Resolved]
  - Corneal thinning [Recovered/Resolved]
  - Visual acuity reduced [Recovered/Resolved]
  - Eye pain [Recovered/Resolved]
  - Photophobia [Recovered/Resolved]
  - Drug ineffective [Recovered/Resolved]
  - Off label use [Recovered/Resolved]

NARRATIVE: CASE EVENT DATE: 20210703
